FAERS Safety Report 4690105-2 (Version None)
Quarter: 2005Q2

REPORT INFORMATION
  Report Type: 
  Country: None (occurrence: None)
  Receive Date: 20050613
  Receipt Date: 20050530
  Transmission Date: 20051028
  Serious: Yes (Hospitalization)
  Sender: FDA-Public Use
  Company Number: HQWYE06810JUN05

PATIENT
  Age: 59 Year
  Sex: Male

DRUGS (4)
  1. RAPAMUNE [Suspect]
     Indication: PROPHYLAXIS AGAINST TRANSPLANT REJECTION
     Dosage: 2 MG/3 MG ALTERNATING^ ORAL
     Route: 048
     Dates: start: 20040901
  2. HEPATECT (IMMUNOGLOBULIN ANTIHEPATITIS B) [Concomitant]
  3. ALLOPRINOL (ALLOPRINOL) [Concomitant]
  4. LOVASTATIN [Concomitant]

REACTIONS (4)
  - BLOOD TRIGLYCERIDES INCREASED [None]
  - CONDITION AGGRAVATED [None]
  - DIABETES MELLITUS [None]
  - METABOLIC DISORDER [None]
